FAERS Safety Report 9522715 (Version 1)
Quarter: 2013Q3

REPORT INFORMATION
  Report Type: Spontaneous
  Country: FR (occurrence: None)
  Receive Date: 20130827
  Receipt Date: 20130827
  Transmission Date: 20140515
  Serious: Yes (Hospitalization)
  Sender: FDA-Public Use
  Company Number: 2013037478

PATIENT
  Age: 75 Year
  Sex: Female

DRUGS (2)
  1. PRIVIGEN [Suspect]
     Dosage: INFUSION RATE: 60 ML/MIN PROGRESSIVELY INCREASED
     Route: 042
  2. POLARAMINE /00072502/ (CHLORPHENAMINE MALEATE) [Concomitant]

REACTIONS (11)
  - Hypersensitivity [None]
  - Hypotension [None]
  - Tachycardia [None]
  - Cyanosis [None]
  - Incorrect drug administration rate [None]
  - Infusion related reaction [None]
  - Device related sepsis [None]
  - Chills [None]
  - Rash macular [None]
  - Chills [None]
  - Abdominal pain [None]
